FAERS Safety Report 6309780-1 (Version None)
Quarter: 2009Q3

REPORT INFORMATION
  Report Type: 
  Country: None (occurrence: None)
  Receive Date: 20090811
  Receipt Date: 20090707
  Transmission Date: 20100115
  Serious: No
  Sender: FDA-Public Use
  Company Number: 1000007305

PATIENT
  Age: 49 Year
  Sex: Female

DRUGS (2)
  1. SAVELLA [Suspect]
     Indication: RHEUMATOID ARTHRITIS
     Dosage: 12.5 MG (12.5 MG, 1 IN 1 D), ORAL; 100 MG (50 MG, 2 IN 1 D), ORAL
     Route: 048
     Dates: start: 20090401, end: 20090401
  2. SAVELLA [Suspect]
     Indication: RHEUMATOID ARTHRITIS
     Dosage: 12.5 MG (12.5 MG, 1 IN 1 D), ORAL; 100 MG (50 MG, 2 IN 1 D), ORAL
     Route: 048
     Dates: start: 20090401

REACTIONS (2)
  - DIZZINESS [None]
  - NAUSEA [None]
